FAERS Safety Report 4655120-3 (Version None)
Quarter: 2005Q2

REPORT INFORMATION
  Report Type: 
  Country: None (occurrence: None)
  Receive Date: 20050505
  Receipt Date: 20050418
  Transmission Date: 20051028
  Serious: Yes (Other)
  Sender: FDA-Public Use
  Company Number: 26574

PATIENT
  Age: 65 Year
  Sex: Female

DRUGS (5)
  1. FLECAINIDE ACETATE [Suspect]
     Indication: ATRIAL FIBRILLATION
     Route: 048
  2. BISOPROLOL FUMARATE [Concomitant]
  3. NOVONORM (REPAGLINIDE) [Concomitant]
  4. GLUCOPHAGE [Concomitant]
  5. TAHOR (ATORVASTATIN) [Concomitant]

REACTIONS (1)
  - MYCOSIS FUNGOIDES [None]
